FAERS Safety Report 15471326 (Version 4)
Quarter: 2023Q1

REPORT INFORMATION
  Report Type: Spontaneous
  Country: US (occurrence: US)
  Receive Date: 20181006
  Receipt Date: 20230326
  Transmission Date: 20230417
  Serious: Yes (Hospitalization, Other)
  Sender: FDA-Public Use
  Company Number: US-009507513-1809USA012274

PATIENT
  Age: 73 Year
  Sex: Male
  Weight: 88.4 kg

DRUGS (9)
  1. PRINIVIL [Suspect]
     Active Substance: LISINOPRIL
     Indication: Hypertension
     Dosage: 20 MG, ONCE DAILY
     Route: 048
     Dates: start: 20171120, end: 20180911
  2. PRINIVIL [Suspect]
     Active Substance: LISINOPRIL
     Dosage: 20 MG, ONCE DAILY
     Route: 048
     Dates: start: 20180918
  3. ENZALUTAMIDE [Suspect]
     Active Substance: ENZALUTAMIDE
     Indication: Prostate cancer
     Dosage: 160 MG, ONCE DAILY
     Dates: start: 20180117, end: 201809
  4. PLACEBO [Suspect]
     Active Substance: UNSPECIFIED INGREDIENT
     Indication: Prostate cancer
     Dosage: 160 MG, ONCE DAILY
     Dates: start: 20180117, end: 201809
  5. ELIGARD [Suspect]
     Active Substance: LEUPROLIDE ACETATE
     Indication: Prostate cancer
     Dosage: 22.5 MG, EVERY 3 MONTHS
     Route: 058
     Dates: start: 20180117
  6. CIALIS [Concomitant]
     Active Substance: TADALAFIL
     Indication: Erectile dysfunction
     Dosage: UNK
     Dates: start: 2013
  7. CETIRIZINE HYDROCHLORIDE [Concomitant]
     Active Substance: CETIRIZINE HYDROCHLORIDE
     Indication: Seasonal allergy
     Dosage: UNK
     Dates: start: 2012
  8. ASCORBIC ACID [Concomitant]
     Active Substance: ASCORBIC ACID
     Indication: Routine health maintenance
     Dosage: UNK
     Dates: start: 2012
  9. TOCOPHEROL [Concomitant]
     Active Substance: TOCOPHEROL
     Indication: Routine health maintenance
     Dosage: UNK
     Dates: start: 2012

REACTIONS (1)
  - Syncope [Recovered/Resolved]

NARRATIVE: CASE EVENT DATE: 20180911
